FAERS Safety Report 23411920 (Version 2)
Quarter: 2024Q1

REPORT INFORMATION
  Report Type: Spontaneous
  Country: US (occurrence: US)
  Receive Date: 20240117
  Receipt Date: 20240125
  Transmission Date: 20240409
  Serious: No
  Sender: FDA-Public Use
  Company Number: US-Covis Pharma GmbH-2024COV00034

PATIENT

DRUGS (1)
  1. ALVESCO [Suspect]
     Active Substance: CICLESONIDE
     Route: 055

REACTIONS (1)
  - Incorrect dose administered [Unknown]
